FAERS Safety Report 6076222-3 (Version None)
Quarter: 2009Q1

REPORT INFORMATION
  Report Type: 
  Country: None (occurrence: None)
  Receive Date: 20090212
  Receipt Date: 20090204
  Transmission Date: 20090719
  Serious: Yes (Other)
  Sender: FDA-Public Use
  Company Number: FR-ROCHE-613006

PATIENT
  Age: 83 Year
  Sex: Male

DRUGS (2)
  1. ROCEPHIN [Suspect]
     Indication: DRUG USE FOR UNKNOWN INDICATION
     Route: 065
     Dates: start: 20090109, end: 20090117
  2. AUGMENTIN '125' [Concomitant]
     Dates: start: 20090103, end: 20090108

REACTIONS (1)
  - ANTI FACTOR V ANTIBODY POSITIVE [None]
